FAERS Safety Report 6485342-0 (Version None)
Quarter: 2009Q4

REPORT INFORMATION
  Report Type: 
  Country: None (occurrence: None)
  Receive Date: 20091209
  Receipt Date: 20090622
  Transmission Date: 20100525
  Serious: No
  Sender: FDA-Public Use
  Company Number: US-AMGEN-KDL352536

PATIENT
  Sex: Female

DRUGS (6)
  1. ENBREL [Suspect]
     Indication: PSORIASIS
     Route: 058
     Dates: start: 20090427, end: 20090622
  2. HYDROCHLOROTHIAZIDE [Concomitant]
  3. GLUCOVANCE [Concomitant]
  4. OMEPRAZOLE [Concomitant]
  5. LYRICA [Concomitant]
  6. VALSARTAN [Concomitant]

REACTIONS (1)
  - OVERDOSE [None]
